FAERS Safety Report 7934935-X (Version None)
Quarter: 2011Q4

REPORT INFORMATION
  Report Type: 
  Country: None (occurrence: None)
  Receive Date: 20111122
  Receipt Date: 20111118
  Transmission Date: 20120403
  Serious: Yes (Other)
  Sender: FDA-Public Use
  Company Number: BR-ABBOTT-11P-020-0875673-00

PATIENT
  Sex: Male
  Weight: 100 kg

DRUGS (7)
  1. METHOTREXATE [Concomitant]
     Indication: RHEUMATOID ARTHRITIS
     Dosage: FORM STRENGTH: 10 MILLIGRAM
     Route: 048
     Dates: start: 20060101
  2. PREDNISONE TAB [Concomitant]
     Indication: RHEUMATOID ARTHRITIS
     Dosage: FORM STRENGTH: 15 MILLIGRAM
     Route: 048
     Dates: start: 20060101
  3. ALPRAZOLAM [Concomitant]
     Indication: DEPRESSION
     Dosage: DAILY DOSE: 25 MILLIGRAM
     Dates: start: 20111001
  4. ALUMINUM HYDROXIDE [Concomitant]
     Indication: GASTRIC DISORDER
     Route: 048
     Dates: start: 20111001
  5. ALUMINUM HYDROXIDE [Concomitant]
     Indication: PROPHYLAXIS
  6. AMITRIPTYLINE HCL [Concomitant]
     Indication: DEPRESSION
     Dosage: DAILY DOSE: 25 MILLIGRAM
     Route: 048
     Dates: start: 20060101
  7. HUMIRA [Suspect]
     Indication: ANKYLOSING SPONDYLITIS
     Route: 058
     Dates: start: 20100519

REACTIONS (3)
  - ROAD TRAFFIC ACCIDENT [None]
  - FOREIGN BODY [None]
  - INFLUENZA [None]
